FAERS Safety Report 11792897 (Version 1)
Quarter: 2015Q4

REPORT INFORMATION
  Report Type: Spontaneous
  Country: US (occurrence: US)
  Receive Date: 20151202
  Receipt Date: 20151202
  Transmission Date: 20160305
  Serious: Yes (Other)
  Sender: FDA-Public Use
  Company Number: PHEH2015US024942

PATIENT
  Age: 58 Year
  Sex: Female

DRUGS (3)
  1. AROMASIN [Suspect]
     Active Substance: EXEMESTANE
     Indication: PRODUCT USED FOR UNKNOWN INDICATION
     Dosage: 25 MG, UNK
     Route: 065
  2. LETROZOLE. [Suspect]
     Active Substance: LETROZOLE
     Indication: BREAST CANCER
     Dosage: UNK
     Route: 065
     Dates: start: 201308
  3. TAXOL [Concomitant]
     Active Substance: PACLITAXEL
     Indication: PRODUCT USED FOR UNKNOWN INDICATION
     Dosage: UNK UNK, QW (FOR 12 WEEKS)
     Route: 065

REACTIONS (9)
  - Neuropathy peripheral [Unknown]
  - Hypoaesthesia [Unknown]
  - Poor quality sleep [Unknown]
  - Paraesthesia [Unknown]
  - Gait disturbance [Unknown]
  - Osteopenia [Unknown]
  - Deep vein thrombosis [Unknown]
  - Pain in extremity [Unknown]
  - Discomfort [Unknown]

NARRATIVE: CASE EVENT DATE: 20130906
